FAERS Safety Report 18314728 (Version 1)
Quarter: 2020Q3

REPORT INFORMATION
  Report Type: Report from Study
  Country: IR (occurrence: IR)
  Receive Date: 20200925
  Receipt Date: 20200925
  Transmission Date: 20201103
  Serious: Yes (Hospitalization, Other)
  Sender: FDA-Public Use
  Company Number: IR-NOVOPROD-754117

PATIENT
  Age: 40 Year
  Sex: Female
  Weight: 96.8 kg

DRUGS (1)
  1. SAXENDA [Suspect]
     Active Substance: LIRAGLUTIDE
     Indication: OBESITY
     Dosage: 1.80 MG, QD
     Route: 058
     Dates: start: 20200905

REACTIONS (5)
  - Swelling face [Unknown]
  - Eye swelling [Unknown]
  - Syncope [Unknown]
  - Urticaria [Unknown]
  - Peripheral swelling [Unknown]

NARRATIVE: CASE EVENT DATE: 202009
